FAERS Safety Report 9453208 (Version 1)
Quarter: 2013Q3

REPORT INFORMATION
  Report Type: Spontaneous
  Country: US (occurrence: US)
  Receive Date: 20130812
  Receipt Date: 20130812
  Transmission Date: 20140515
  Serious: Yes (Other)
  Sender: FDA-Public Use
  Company Number: US-PFIZER INC-2013233085

PATIENT
  Age: 62 Year
  Sex: Female
  Weight: 65.76 kg

DRUGS (5)
  1. PRISTIQ [Suspect]
     Indication: DEPRESSION
     Dosage: 50 MG, 1X/DAY
     Route: 048
     Dates: start: 20130808
  2. PRISTIQ [Interacting]
     Indication: FIBROMYALGIA
  3. URIBEL [Interacting]
     Dosage: 118 MG, 4X/DAY
  4. ELMIRON [Concomitant]
     Indication: CYSTITIS INTERSTITIAL
     Dosage: UNK
  5. VIIBRYD [Concomitant]
     Dosage: 50 MG, UNK

REACTIONS (5)
  - Dyspnoea [Unknown]
  - Panic attack [Unknown]
  - Drug interaction [Unknown]
  - Feeling abnormal [Unknown]
  - Off label use [Unknown]
